FAERS Safety Report 7919228-9 (Version None)
Quarter: 2011Q4

REPORT INFORMATION
  Report Type: 
  Country: None (occurrence: None)
  Receive Date: 20111117
  Receipt Date: 20111114
  Transmission Date: 20120403
  Serious: Yes (Other)
  Sender: FDA-Public Use
  Company Number: US-SHIRE-ALL1-2011-02934

PATIENT
  Sex: Female
  Weight: 25.85 kg

DRUGS (2)
  1. VYVANSE [Suspect]
     Indication: ATTENTION DEFICIT/HYPERACTIVITY DISORDER
     Dosage: 30 MG, 1X/DAY:QD
     Route: 048
     Dates: start: 20110201, end: 20110801
  2. VISTARIL                           /00058402/ [Concomitant]
     Indication: SLEEP DISORDER
     Dosage: UNK, UNKNOWN
     Route: 065
     Dates: start: 20110801

REACTIONS (4)
  - SLEEP DISORDER [None]
  - CONDITION AGGRAVATED [None]
  - SUICIDAL BEHAVIOUR [None]
  - MOOD SWINGS [None]
